FAERS Safety Report 19036437 (Version 1)
Quarter: 2021Q1

REPORT INFORMATION
  Report Type: Spontaneous
  Country: US (occurrence: US)
  Receive Date: 20210319
  Receipt Date: 20210319
  Transmission Date: 20210420
  Serious: Yes (Other)
  Sender: FDA-Public Use
  Company Number: None

PATIENT
  Age: 43 Year
  Sex: Male
  Weight: 90 kg

DRUGS (1)
  1. ADAMS SECRETS MAXIMUM SEXUAL STIMULANT 3000 [DIETARY SUPPLEMENT] [Suspect]
     Active Substance: DIETARY SUPPLEMENT
     Indication: ERECTILE DYSFUNCTION
     Dosage: ?          QUANTITY:10 CAPSULE(S);?
     Route: 048

REACTIONS (2)
  - Blindness [None]
  - Syncope [None]

NARRATIVE: CASE EVENT DATE: 20200214
